FAERS Safety Report 19411687 (Version 1)
Quarter: 2021Q2

REPORT INFORMATION
  Report Type: Spontaneous
  Country: US (occurrence: US)
  Receive Date: 20210614
  Receipt Date: 20210614
  Transmission Date: 20210717
  Serious: Yes (Other)
  Sender: FDA-Public Use
  Company Number: None

PATIENT

DRUGS (1)
  1. TELIGENT CLOBETASOL PROPIONATE GEL 0.05% [Suspect]
     Active Substance: CLOBETASOL PROPIONATE
     Route: 061
     Dates: start: 20210506

REACTIONS (7)
  - Swelling face [None]
  - Oral mucosal exfoliation [None]
  - Fatigue [None]
  - Oral pain [None]
  - Lip swelling [None]
  - Breast disorder [None]
  - Swollen tongue [None]
